FAERS Safety Report 18920999 (Version 4)
Quarter: 2021Q2

REPORT INFORMATION
  Report Type: Spontaneous
  Country: JP (occurrence: JP)
  Receive Date: 20210222
  Receipt Date: 20210428
  Transmission Date: 20210717
  Serious: Yes (Death, Hospitalization)
  Sender: FDA-Public Use
  Company Number: NVSJ2021JP002588

PATIENT
  Age: 82 Year
  Sex: Male
  Weight: 68 kg

DRUGS (17)
  1. XARELTO [Concomitant]
     Active Substance: RIVAROXABAN
     Indication: ATRIAL FIBRILLATION
     Dosage: 10 MG, QD
     Route: 065
     Dates: end: 20210304
  2. FAMOTIDINE. [Concomitant]
     Active Substance: FAMOTIDINE
     Indication: HAEMORRHAGE PROPHYLAXIS
     Dosage: 20 MG, QD
     Route: 065
     Dates: end: 20210304
  3. FRANDOL S [Concomitant]
     Active Substance: ISOSORBIDE DINITRATE
     Indication: PERCUTANEOUS CORONARY INTERVENTION
  4. FRANDOL S [Concomitant]
     Active Substance: ISOSORBIDE DINITRATE
     Indication: MYOCARDIAL ISCHAEMIA
     Dosage: 40 MG, QD
     Route: 065
     Dates: end: 20210304
  5. ZETIA [Concomitant]
     Active Substance: EZETIMIBE
     Indication: PERCUTANEOUS CORONARY INTERVENTION
  6. FUROSEMIDE. [Concomitant]
     Active Substance: FUROSEMIDE
     Indication: CARDIAC FAILURE CHRONIC
     Dosage: 20 MG, QD
     Route: 065
     Dates: end: 20210304
  7. PEMAFIBRATE [Concomitant]
     Active Substance: PEMAFIBRATE
     Indication: MYOCARDIAL ISCHAEMIA
     Dosage: 0.1 MG, BID
     Route: 065
     Dates: end: 20210304
  8. EPADEL [Concomitant]
     Active Substance: ICOSAPENT
     Indication: MYOCARDIAL ISCHAEMIA
     Dosage: 900 MG, BID
     Route: 065
     Dates: end: 20210304
  9. EPADEL [Concomitant]
     Active Substance: ICOSAPENT
     Indication: HYPERLIPIDAEMIA
  10. SELARA [Concomitant]
     Active Substance: EPLERENONE
     Indication: CARDIAC FAILURE CHRONIC
     Dosage: 25 MG, QD
     Route: 065
     Dates: end: 20210304
  11. PEMAFIBRATE [Concomitant]
     Active Substance: PEMAFIBRATE
     Indication: PERCUTANEOUS CORONARY INTERVENTION
  12. ENTRESTO [Suspect]
     Active Substance: SACUBITRIL\VALSARTAN
     Indication: CARDIAC FAILURE CHRONIC
     Dosage: 50 MG, BID
     Route: 048
     Dates: start: 20201005, end: 20210211
  13. AMLODIN [Concomitant]
     Active Substance: AMLODIPINE BESYLATE
     Indication: HYPERTENSION
     Dosage: 5 MG, QD
     Route: 065
     Dates: end: 20210304
  14. ZETIA [Concomitant]
     Active Substance: EZETIMIBE
     Indication: MYOCARDIAL ISCHAEMIA
     Dosage: 10 MG, QD
     Route: 065
     Dates: end: 20210304
  15. CARVEDILOL. [Concomitant]
     Active Substance: CARVEDILOL
     Indication: CARDIAC FAILURE CHRONIC
     Dosage: 2.5 MG, BID
     Route: 065
     Dates: end: 20210304
  16. PEMAFIBRATE [Concomitant]
     Active Substance: PEMAFIBRATE
     Indication: HYPERLIPIDAEMIA
  17. EPADEL [Concomitant]
     Active Substance: ICOSAPENT
     Indication: PERCUTANEOUS CORONARY INTERVENTION

REACTIONS (2)
  - Idiopathic interstitial pneumonia [Fatal]
  - Respiratory failure [Fatal]

NARRATIVE: CASE EVENT DATE: 20210211
